FAERS Safety Report 8423751-0 (Version None)
Quarter: 2012Q2

REPORT INFORMATION
  Report Type: 
  Country: None (occurrence: None)
  Receive Date: 20120608
  Receipt Date: 20110926
  Transmission Date: 20120825
  Serious: No
  Sender: FDA-Public Use
  Company Number: US-ASTRAZENECA-2011SE57703

PATIENT
  Sex: Male

DRUGS (1)
  1. ATACAND [Suspect]
     Route: 048

REACTIONS (1)
  - BLOOD PRESSURE INADEQUATELY CONTROLLED [None]
